FAERS Safety Report 14791126 (Version 1)
Quarter: 2018Q2

REPORT INFORMATION
  Report Type: Spontaneous
  Country: FR (occurrence: FR)
  Receive Date: 20180423
  Receipt Date: 20180423
  Transmission Date: 20180711
  Serious: Yes (Other)
  Sender: FDA-Public Use
  Company Number: FR-ABBVIE-18K-056-2329034-00

PATIENT
  Age: 28 Year
  Sex: Male
  Weight: 124 kg

DRUGS (1)
  1. HUMIRA [Suspect]
     Active Substance: ADALIMUMAB
     Indication: CROHN^S DISEASE
     Route: 058
     Dates: start: 20070601, end: 20110228

REACTIONS (1)
  - Mycosis fungoides [Recovering/Resolving]

NARRATIVE: CASE EVENT DATE: 20110201
